FAERS Safety Report 15458766 (Version 1)
Quarter: 2018Q4

REPORT INFORMATION
  Report Type: Spontaneous
  Country: DE (occurrence: DE)
  Receive Date: 20181003
  Receipt Date: 20181003
  Transmission Date: 20190204
  Serious: Yes (Death, Hospitalization, Other)
  Sender: FDA-Public Use
  Company Number: DE-AUROBINDO-AUR-APL-2018-028117

PATIENT
  Age: 55 Year
  Sex: Male
  Weight: 74 kg

DRUGS (10)
  1. BEVACIZUMAB. [Suspect]
     Active Substance: BEVACIZUMAB
     Indication: COLORECTAL CANCER
     Dosage: 370 MILLIGRAM, 2 WEEK, MOST RECENT DOSE PRIOR TO SAE ON 06/SEP/2016.
     Route: 042
     Dates: start: 20160906, end: 20160906
  2. BEVACIZUMAB. [Suspect]
     Active Substance: BEVACIZUMAB
     Dosage: 370 MILLIGRAM, 2 WEEK
     Route: 042
     Dates: start: 20150908, end: 20150908
  3. OXALIPLATIN. [Suspect]
     Active Substance: OXALIPLATIN
     Indication: COLORECTAL CANCER
     Dosage: 157 MILLIGRAM, 2 WEEK, MOST RECENT DOSE PRIOR TO SAE ON 06/SEP/2016.
     Route: 042
     Dates: start: 20160906, end: 20160906
  4. 5-FLUOROURACIL                     /00098801/ [Suspect]
     Active Substance: FLUOROURACIL
     Indication: COLORECTAL CANCER
     Dosage: 470 MILLIGRAM, 2 WEEK
     Route: 040
     Dates: start: 20160906, end: 20160907
  5. 5-FLUOROURACIL                     /00098801/ [Suspect]
     Active Substance: FLUOROURACIL
     Dosage: 1110 MILLIGRAM, 2 WEEK, MOST RECENT DOSE PRIOR TO SAE ON 06/SEP/2016.
     Route: 042
     Dates: start: 20160906, end: 20160907
  6. 5-FLUOROURACIL                     /00098801/ [Suspect]
     Active Substance: FLUOROURACIL
     Dosage: 740 MILLIGRAM, 2 WEEK
     Route: 040
     Dates: start: 20150908, end: 20150909
  7. OXALIPLATIN. [Suspect]
     Active Substance: OXALIPLATIN
     Dosage: 157 MILLIGRAM, 2 WEEK
     Route: 042
     Dates: start: 20150908, end: 20150908
  8. FOLINIC ACID [Concomitant]
     Active Substance: LEUCOVORIN
     Indication: COLORECTAL CANCER
     Dosage: 370 MILLIGRAM, 2 WEEK
     Route: 042
     Dates: start: 20150908, end: 20160907
  9. 5-FLUOROURACIL                     /00098801/ [Suspect]
     Active Substance: FLUOROURACIL
     Dosage: 1110 MILLIGRAM, 2 WEEK
     Route: 042
     Dates: start: 20150908, end: 20150909
  10. 5-FLUOROURACIL                     /00098801/ [Concomitant]
     Active Substance: FLUOROURACIL
     Indication: COLORECTAL CANCER
     Dosage: 740 MILLIGRAM, 2 WEEK
     Route: 040
     Dates: start: 20150908, end: 20150909

REACTIONS (4)
  - Anaemia [Not Recovered/Not Resolved]
  - Thrombocytopenia [Not Recovered/Not Resolved]
  - Pulmonary sepsis [Fatal]
  - Pneumonia [Fatal]

NARRATIVE: CASE EVENT DATE: 20160914
